FAERS Safety Report 19078375 (Version 1)
Quarter: 2021Q1

REPORT INFORMATION
  Report Type: Spontaneous
  Country: US (occurrence: US)
  Receive Date: 20210331
  Receipt Date: 20210331
  Transmission Date: 20210420
  Serious: Yes (Other)
  Sender: FDA-Public Use
  Company Number: None

PATIENT
  Age: 36 Year
  Sex: Female

DRUGS (6)
  1. HUMIRA [Suspect]
     Active Substance: ADALIMUMAB
     Indication: ENTERITIS
     Route: 058
     Dates: start: 20210330
  2. HUMIRA [Suspect]
     Active Substance: ADALIMUMAB
     Indication: INFERTILITY FEMALE
     Route: 058
     Dates: start: 20210330
  3. CLOPIDOGREL [Concomitant]
     Active Substance: CLOPIDOGREL BISULFATE
     Dates: start: 20201111
  4. OMEPRAZOLE. [Concomitant]
     Active Substance: OMEPRAZOLE
     Dates: start: 20210220
  5. HUMIRA [Suspect]
     Active Substance: ADALIMUMAB
     Indication: OTITIS MEDIA
     Route: 058
     Dates: start: 20210330
  6. UCERIS [Concomitant]
     Active Substance: BUDESONIDE
     Dates: start: 20210305

REACTIONS (8)
  - Drug ineffective [None]
  - Maternal exposure during pregnancy [None]
  - Condition aggravated [None]
  - Colectomy [None]
  - Foetal exposure during pregnancy [None]
  - Weight abnormal [None]
  - Diarrhoea [None]
  - Therapy interrupted [None]

NARRATIVE: CASE EVENT DATE: 20210330
